FAERS Safety Report 23406248 (Version 1)
Quarter: 2024Q1

REPORT INFORMATION
  Report Type: Spontaneous
  Country: US (occurrence: US)
  Receive Date: 20240116
  Receipt Date: 20240116
  Transmission Date: 20240410
  Serious: No
  Sender: FDA-Public Use
  Company Number: US-PFIZER INC-202400010903

PATIENT
  Age: 61 Year
  Sex: Female

DRUGS (1)
  1. PAXLOVID [Suspect]
     Active Substance: NIRMATRELVIR\RITONAVIR
     Indication: COVID-19 treatment
     Dosage: 300MG/100MG DOSE PACK, NIRMATRELVIR TABLET, RITONAVIR TABLET, ORAL USE, TWICE A DAY AT 10AM AND 10PM
     Route: 048
     Dates: start: 20240108

REACTIONS (2)
  - Feeling abnormal [Unknown]
  - Vision blurred [Unknown]
